FAERS Safety Report 25590991 (Version 1)
Quarter: 2025Q3

REPORT INFORMATION
  Report Type: Spontaneous
  Country: CN (occurrence: CN)
  Receive Date: 20250722
  Receipt Date: 20250722
  Transmission Date: 20251021
  Serious: Yes (Other)
  Sender: PFIZER
  Company Number: CN-PFIZER INC-PV202500086374

PATIENT
  Age: 1 Day
  Sex: Female
  Weight: 1.52 kg

DRUGS (3)
  1. MEROPENEM [Suspect]
     Active Substance: MEROPENEM
     Indication: Neonatal pneumonia
     Dosage: 0.047 G, 2X/DAY
     Dates: start: 20250331, end: 20250415
  2. MEROPENEM [Suspect]
     Active Substance: MEROPENEM
     Dosage: 0.047 G, 2X/DAY
     Dates: start: 20250331, end: 20250415
  3. DEXTROSE [Concomitant]
     Active Substance: DEXTROSE MONOHYDRATE
     Dates: start: 20250331, end: 20250415

REACTIONS (2)
  - Infantile diarrhoea [Recovering/Resolving]
  - Product administered to patient of inappropriate age [Unknown]

NARRATIVE: CASE EVENT DATE: 20250331
